FAERS Safety Report 10917917 (Version 1)
Quarter: 2015Q1

REPORT INFORMATION
  Report Type: Spontaneous
  Country: CN (occurrence: CN)
  Receive Date: 20150316
  Receipt Date: 20150316
  Transmission Date: 20150721
  Serious: Yes (Other)
  Sender: FDA-Public Use
  Company Number: CN-ASTRAZENECA-2015SE23680

PATIENT
  Age: 48 Year
  Sex: Male
  Weight: 72 kg

DRUGS (1)
  1. ESOMEPRAZOLE MAGNESIUM. [Suspect]
     Active Substance: ESOMEPRAZOLE MAGNESIUM
     Indication: DUODENAL ULCER
     Route: 048
     Dates: start: 20131226, end: 20140423

REACTIONS (2)
  - Oesophageal papilloma [Recovering/Resolving]
  - Oesophageal polyp [Recovering/Resolving]

NARRATIVE: CASE EVENT DATE: 2014
